FAERS Safety Report 18067753 (Version 1)
Quarter: 2020Q3

REPORT INFORMATION
  Report Type: Spontaneous
  Country: US (occurrence: US)
  Receive Date: 20200724
  Receipt Date: 20200724
  Transmission Date: 20201103
  Serious: No
  Sender: FDA-Public Use
  Company Number: US-SA-2020SA192716

PATIENT

DRUGS (1)
  1. DUPIXENT [Suspect]
     Active Substance: DUPILUMAB
     Indication: DERMATITIS ATOPIC
     Dosage: 200 MG, QOW
     Route: 058
     Dates: start: 20190801

REACTIONS (8)
  - Injection site erythema [Recovered/Resolved]
  - Skin haemorrhage [Unknown]
  - Injection site swelling [Recovered/Resolved]
  - Skin exfoliation [Unknown]
  - Injection site pruritus [Recovered/Resolved]
  - Product use issue [Unknown]
  - Pruritus [Unknown]
  - Dry skin [Unknown]

NARRATIVE: CASE EVENT DATE: 20190801
